FAERS Safety Report 5688477-5 (Version None)
Quarter: 2008Q1

REPORT INFORMATION
  Report Type: 
  Country: None (occurrence: None)
  Receive Date: 20080331
  Receipt Date: 20080320
  Transmission Date: 20080703
  Serious: Yes (Other)
  Sender: FDA-Public Use
  Company Number: US-SOLVAY-00208001212

PATIENT
  Age: 471 Month
  Sex: Male
  Weight: 112.5 kg

DRUGS (11)
  1. WELLBUTRIN [Concomitant]
     Indication: HYPERTENSION
     Dosage: DAILY DOSE: 150 MILLIGRAM(S)
     Route: 048
  2. ANDROGEL [Suspect]
     Indication: BLOOD TESTOSTERONE DECREASED
     Dosage: DAILY DOSE: 10 GRAM(S)
     Route: 062
     Dates: start: 20070301
  3. VERELAN [Concomitant]
     Indication: HYPERTENSION
     Dosage: DAILY DOSE: 300 MILLIGRAM(S)
     Route: 048
  4. LISINOPRIL [Concomitant]
     Indication: HYPERTENSION
     Dosage: DAILY DOSE: 80 MILLIGRAM(S)
     Route: 048
  5. NEXIUM [Concomitant]
     Indication: GASTROOESOPHAGEAL REFLUX DISEASE
     Dosage: DAILY DOSE: 40 MILLIGRAM(S)
     Route: 048
  6. RANITIDINE [Concomitant]
     Indication: GASTROOESOPHAGEAL REFLUX DISEASE
     Dosage: DAILY DOSE: 300 MILLIGRAM(S)
     Route: 048
  7. TOPAMAX [Concomitant]
     Indication: MIGRAINE
     Dosage: DAILY DOSE: 160 MILLIGRAM(S)
     Route: 048
  8. ADVAIR DISKUS 100/50 [Concomitant]
     Indication: ASTHMA
     Dosage: DAILY DOSE:  UNKNOWN
     Route: 048
  9. ASPIRIN [Concomitant]
     Indication: ILL-DEFINED DISORDER
     Dosage: DAILY DOSE: 81 MILLIGRAM(S)
     Route: 048
  10. UNKNOWN INHALER [Concomitant]
     Indication: ASTHMA
     Dosage: DAILY DOSE:  UNKNOWN
     Route: 048
  11. NEBULIZER TREATMENT [Concomitant]
     Indication: ASTHMA
     Dosage: DAILY DOSE:  UNKNOWN
     Route: 048

REACTIONS (4)
  - HYPERTENSION [None]
  - PNEUMONIA BACTERIAL [None]
  - SKIN CANDIDA [None]
  - SYSTEMIC CANDIDA [None]
